FAERS Safety Report 10715993 (Version 6)
Quarter: 2016Q1

REPORT INFORMATION
  Report Type: Spontaneous
  Country: US (occurrence: US)
  Receive Date: 20150116
  Receipt Date: 20160108
  Transmission Date: 20160525
  Serious: Yes (Other)
  Sender: FDA-Public Use
  Company Number: US-PFIZER INC-2014279271

PATIENT
  Age: 66 Year
  Sex: Female
  Weight: 81 kg

DRUGS (12)
  1. TAMOXIFEN CITRATE. [Concomitant]
     Active Substance: TAMOXIFEN CITRATE
     Indication: BREAST CANCER
     Dosage: 20 MG, 1X/DAY
     Dates: start: 20151027
  2. SUTENT [Suspect]
     Active Substance: SUNITINIB MALATE
     Indication: GASTROINTESTINAL STROMAL TUMOUR
     Dosage: 25 MG, 1X/DAY, 2 WEEKS ON, THEN 2 WEEKS OFF
     Route: 048
     Dates: start: 200907, end: 20110612
  3. SUTENT [Suspect]
     Active Substance: SUNITINIB MALATE
     Dosage: 25 MG, 1X/DAY (TWO WEEKS ON AND TWO WEEKS OFF)
     Route: 048
     Dates: start: 201209
  4. LOSARTAN AND HYDROCHLOROTHIAZIDE [Concomitant]
     Active Substance: HYDROCHLOROTHIAZIDE\LOSARTAN POTASSIUM
     Dosage: UNK
     Dates: start: 20150414
  5. ATORVASTATIN [Concomitant]
     Active Substance: ATORVASTATIN
     Dosage: 40 MG, 1X/DAY (AT BEDTIME)
     Dates: start: 2000
  6. LEVOTHYROXINE. [Concomitant]
     Active Substance: LEVOTHYROXINE
     Indication: THYROID DISORDER
     Dosage: 88 ?G, 1X/DAY
  7. TRADJENTA [Concomitant]
     Active Substance: LINAGLIPTIN
     Dosage: 5 MG, 1X/DAY
     Dates: start: 20150712
  8. INVOKAMET [Concomitant]
     Active Substance: CANAGLIFLOZIN\METFORMIN HYDROCHLORIDE
     Dosage: UNK, 1X/DAY (CANAGLIFLOZIN 150 MG, METFORMIN HYDROCHLORIDE 500 MG)
     Dates: start: 20150727
  9. SUTENT [Suspect]
     Active Substance: SUNITINIB MALATE
     Dosage: UNK
  10. SUTENT [Suspect]
     Active Substance: SUNITINIB MALATE
     Dosage: UNK
     Dates: start: 201209
  11. LOSARTAN AND HYDROCHLOROTHIAZIDE [Concomitant]
     Active Substance: HYDROCHLOROTHIAZIDE\LOSARTAN POTASSIUM
     Indication: BLOOD PRESSURE ABNORMAL
     Dosage: UNK (50MG LOSARTAN/12.5MG HCTZ), 1X/DAY
  12. LEVOTHYROXINE. [Concomitant]
     Active Substance: LEVOTHYROXINE
     Dosage: 100 MG, 1X/DAY
     Dates: start: 20130415

REACTIONS (12)
  - Neuritis [Unknown]
  - Weight fluctuation [Unknown]
  - Neuralgia [Not Recovered/Not Resolved]
  - Disease progression [Unknown]
  - Endometrial thickening [Unknown]
  - Second primary malignancy [Recovered/Resolved]
  - Breast cancer [Recovered/Resolved]
  - Gastrooesophageal reflux disease [Recovered/Resolved]
  - Fall [Unknown]
  - Gastrointestinal stromal cancer [Unknown]
  - Skin abrasion [Unknown]
  - Weight decreased [Unknown]

NARRATIVE: CASE EVENT DATE: 2009
